FAERS Safety Report 15297718 (Version 2)
Quarter: 2018Q3

REPORT INFORMATION
  Report Type: Spontaneous
  Country: US (occurrence: US)
  Receive Date: 20180820
  Receipt Date: 20180921
  Transmission Date: 20181010
  Serious: Yes (Hospitalization, Other)
  Sender: FDA-Public Use
  Company Number: CN-ASTRAZENECA-2018SF05303

PATIENT
  Age: 54 Year
  Sex: Male
  Weight: 78.2 kg

DRUGS (11)
  1. NEXIUM 24HR [Suspect]
     Active Substance: ESOMEPRAZOLE MAGNESIUM
     Indication: ABDOMINAL DISCOMFORT
     Route: 048
     Dates: end: 20170211
  2. ASPIRIN. [Concomitant]
     Active Substance: ASPIRIN
     Route: 048
  3. LISINOPRIL. [Concomitant]
     Active Substance: LISINOPRIL
     Route: 048
     Dates: start: 20151012
  4. HYDROCODONE/ACETAMINOPHEN [Concomitant]
     Active Substance: ACETAMINOPHEN\HYDROCODONE
     Dosage: AS NEEDED [HYDROCODONE?5MG]/[ACETAMINOPHEN?325MG] (TAKE 1?2 TABLETS BY MOUTH EVERY 6 (SIX))
     Route: 048
     Dates: start: 20180221
  5. DULOXETINE. [Concomitant]
     Active Substance: DULOXETINE
     Route: 048
     Dates: start: 20150529
  6. METFORMIN [Concomitant]
     Active Substance: METFORMIN HYDROCHLORIDE
     Route: 048
  7. PIOGLITAZONE. [Concomitant]
     Active Substance: PIOGLITAZONE
     Route: 048
     Dates: start: 20150519
  8. NEXIUM 24HR [Suspect]
     Active Substance: ESOMEPRAZOLE MAGNESIUM
     Indication: ABDOMINAL DISCOMFORT
     Dosage: 1.0DF UNKNOWN
     Route: 048
     Dates: start: 20180211, end: 20180211
  9. METOPROLOL SUCCINATE. [Concomitant]
     Active Substance: METOPROLOL SUCCINATE
     Route: 048
     Dates: start: 20150724
  10. ROSUVASTATIN. [Concomitant]
     Active Substance: ROSUVASTATIN
     Route: 048
     Dates: start: 20150612
  11. NITROGLYCERIN. [Concomitant]
     Active Substance: NITROGLYCERIN
     Dosage: 0.4MG AS REQUIRED
     Route: 060

REACTIONS (24)
  - Arterial bypass occlusion [Unknown]
  - Peripheral vascular disorder [Unknown]
  - Hypotension [Recovered/Resolved]
  - Loss of consciousness [Recovered/Resolved]
  - Pain [Recovering/Resolving]
  - Haematoma [Unknown]
  - Swelling [Recovered/Resolved]
  - Vascular pain [Unknown]
  - Syncope [Unknown]
  - Gout [Unknown]
  - Dermatitis allergic [Unknown]
  - Product use in unapproved indication [Unknown]
  - Pain in extremity [Unknown]
  - Urticaria [Recovered/Resolved]
  - Vascular graft occlusion [Recovering/Resolving]
  - Peripheral coldness [Recovering/Resolving]
  - Hypoaesthesia [Unknown]
  - Peripheral artery stenosis [Unknown]
  - Hyperglycaemia [Unknown]
  - Hepatic steatosis [Unknown]
  - Diverticulum [Unknown]
  - Seroma [Unknown]
  - Anaphylactic reaction [Recovering/Resolving]
  - Myalgia [Unknown]

NARRATIVE: CASE EVENT DATE: 20180211
